FAERS Safety Report 12385159 (Version 2)
Quarter: 2016Q2

REPORT INFORMATION
  Report Type: Spontaneous
  Country: CH (occurrence: CH)
  Receive Date: 20160519
  Receipt Date: 20160520
  Transmission Date: 20160815
  Serious: Yes (Death, Other)
  Sender: FDA-Public Use
  Company Number: CH-PFIZER INC-2016264525

PATIENT
  Age: 79 Year
  Sex: Male

DRUGS (9)
  1. CONCOR [Concomitant]
     Active Substance: BISOPROLOL FUMARATE
     Dosage: UNK
  2. CONDROSULF [Concomitant]
     Active Substance: CHONDROITIN SULFATE (CHICKEN)
     Dosage: UNK
  3. ASPIRIN CARDIO [Interacting]
     Active Substance: ASPIRIN
     Dosage: 100 MG, DAILY
     Route: 048
     Dates: end: 20160501
  4. KCL-RETARD [Concomitant]
     Active Substance: POTASSIUM CHLORIDE
     Dosage: UNK
  5. XARELTO [Interacting]
     Active Substance: RIVAROXABAN
     Dosage: 20 MG, DAILY
     Route: 048
     Dates: end: 20160501
  6. CRESTOR [Concomitant]
     Active Substance: ROSUVASTATIN CALCIUM
     Dosage: UNK
  7. CORDARONE [Suspect]
     Active Substance: AMIODARONE HYDROCHLORIDE
     Dosage: 200 MG, DAILY
     Route: 048
     Dates: end: 20160501
  8. TOREM [Concomitant]
     Active Substance: TORSEMIDE
     Dosage: UNK
  9. ZESTRIL [Concomitant]
     Active Substance: LISINOPRIL
     Dosage: UNK

REACTIONS (3)
  - Renal impairment [Unknown]
  - Drug interaction [Fatal]
  - Cerebral haemorrhage [Fatal]

NARRATIVE: CASE EVENT DATE: 20160501
